FAERS Safety Report 13970780 (Version 1)
Quarter: 2017Q3

REPORT INFORMATION
  Report Type: Spontaneous
  Country: US (occurrence: US)
  Receive Date: 20170914
  Receipt Date: 20170914
  Transmission Date: 20171128
  Serious: Yes (Other)
  Sender: FDA-Public Use
  Company Number: US-ASTELLAS-2016US047552

PATIENT
  Age: 87 Year
  Sex: Male

DRUGS (1)
  1. XTANDI [Suspect]
     Active Substance: ENZALUTAMIDE
     Indication: COLON CANCER
     Route: 048
     Dates: start: 20130404, end: 20161031

REACTIONS (4)
  - Weight decreased [Unknown]
  - Body height decreased [Unknown]
  - Off label use [Unknown]
  - Malignant neoplasm progression [Unknown]
